FAERS Safety Report 9324301 (Version 1)
Quarter: 2013Q2

REPORT INFORMATION
  Report Type: Spontaneous
  Country: CH (occurrence: CH)
  Receive Date: 20130603
  Receipt Date: 20130603
  Transmission Date: 20140414
  Serious: Yes (Other)
  Sender: FDA-Public Use
  Company Number: CH-BAYER-2013-067355

PATIENT
  Age: 40 Year
  Sex: Male

DRUGS (3)
  1. NEXAVAR [Suspect]
     Indication: RENAL CELL CARCINOMA
     Dosage: UNK
     Dates: start: 201005, end: 201208
  2. SUNITINIB [Interacting]
     Indication: RENAL CELL CARCINOMA
     Dosage: UNK
     Dates: start: 201009, end: 201101
  3. ZOMETA [Interacting]
     Indication: METASTASES TO BONE
     Dosage: 4 MG, OM
     Route: 042
     Dates: start: 20100312

REACTIONS (2)
  - Osteonecrosis of jaw [None]
  - Potentiating drug interaction [None]
